FAERS Safety Report 6090959-1 (Version None)
Quarter: 2009Q1

REPORT INFORMATION
  Report Type: 
  Country: None (occurrence: None)
  Receive Date: 20090225
  Receipt Date: 20090213
  Transmission Date: 20090719
  Serious: Yes (Other)
  Sender: FDA-Public Use
  Company Number: DE-RANBAXY-2009RR-21921

PATIENT
  Age: 27 Year
  Sex: Female

DRUGS (1)
  1. CLINDAMYCIN HYDROCHLORIDE [Suspect]
     Indication: TOOTH ABSCESS
     Dosage: 600 MG, BID
     Route: 048
     Dates: start: 20090120, end: 20090127

REACTIONS (3)
  - DIARRHOEA [None]
  - TONGUE COATED [None]
  - TONGUE DISCOLOURATION [None]
